FAERS Safety Report 25390153 (Version 1)
Quarter: 2025Q2

REPORT INFORMATION
  Report Type: Spontaneous
  Country: US (occurrence: US)
  Receive Date: 20250603
  Receipt Date: 20250603
  Transmission Date: 20250717
  Serious: Yes (Other)
  Sender: STAQ PHARMA - No Location Specified
  Company Number: US-STAQ Pharma, Inc-2177968

PATIENT
  Age: 18 Month
  Sex: Female

DRUGS (1)
  1. EPINEPHRINE BITARTRATE\LIDOCAINE HYDROCHLORIDE\TETRACAINE HYDROCHLORID [Suspect]
     Active Substance: EPINEPHRINE BITARTRATE\LIDOCAINE HYDROCHLORIDE\TETRACAINE HYDROCHLORIDE
     Indication: Suture insertion

REACTIONS (1)
  - Therapeutic product effect decreased [Recovered/Resolved]
